FAERS Safety Report 5658441-0 (Version None)
Quarter: 2008Q1

REPORT INFORMATION
  Report Type: 
  Country: None (occurrence: None)
  Receive Date: 20080310
  Receipt Date: 20070213
  Transmission Date: 20080703
  Serious: No
  Sender: FDA-Public Use
  Company Number: US-BAYER-200710508BCC

PATIENT
  Age: 55 Year
  Sex: Female
  Weight: 54 kg

DRUGS (7)
  1. ALEVE [Suspect]
     Indication: ARTHRALGIA
     Dosage: UNIT DOSE: 220 MG
     Route: 048
     Dates: start: 20070208
  2. OXYCONTIN [Concomitant]
  3. NEURONTIN [Concomitant]
  4. QUININE SULFATE [Concomitant]
  5. NORCO [Concomitant]
  6. ROBAXIN [Concomitant]
  7. BACLOFEN [Concomitant]

REACTIONS (1)
  - OEDEMA PERIPHERAL [None]
